FAERS Safety Report 14281753 (Version 6)
Quarter: 2018Q2

REPORT INFORMATION
  Report Type: Spontaneous
  Country: US (occurrence: US)
  Receive Date: 20171213
  Receipt Date: 20180430
  Transmission Date: 20180711
  Serious: Yes (Hospitalization)
  Sender: FDA-Public Use
  Company Number: US-PFIZER INC-2017531071

PATIENT
  Age: 59 Year
  Sex: Male

DRUGS (14)
  1. XANAX [Interacting]
     Active Substance: ALPRAZOLAM
     Dosage: 2 MG, DAILY
     Dates: start: 20170602
  2. ATARAX [Interacting]
     Active Substance: HYDROXYZINE HYDROCHLORIDE
     Dosage: 1 MG, TWICE A DAY
     Dates: start: 20170601
  3. ATARAX [Interacting]
     Active Substance: HYDROXYZINE HYDROCHLORIDE
     Dosage: 3 MG, ONCE A DAY (3 1MG A DAY IS AN IMPORTANT)
  4. ALPRAZOLAM. [Interacting]
     Active Substance: ALPRAZOLAM
     Indication: ANXIETY
     Dosage: 0.5 MG, FOUR TIMES A DAY
  5. XANAX [Interacting]
     Active Substance: ALPRAZOLAM
     Dosage: 0.5 MG, 4X/DAY
  6. ATARAX [Interacting]
     Active Substance: HYDROXYZINE HYDROCHLORIDE
     Dosage: 1 MG, THREE TIMES A DAY
     Dates: start: 20150701
  7. VITAMIN D2 [Concomitant]
     Active Substance: ERGOCALCIFEROL
     Dosage: 1.15 MG (OF 5000 UNITS), UNK
  8. HYDROXYZINE [Concomitant]
     Active Substance: HYDROXYZINE HYDROCHLORIDE
     Dosage: UNK (ONCE IN A WHILE)
  9. VITAMIN D2 [Concomitant]
     Active Substance: ERGOCALCIFEROL
     Dosage: 1.25 MG, (50000 UNITS)
     Dates: start: 20171108
  10. XANAX [Interacting]
     Active Substance: ALPRAZOLAM
     Dosage: 3 MG, DAILY
  11. ATARAX [Interacting]
     Active Substance: HYDROXYZINE HYDROCHLORIDE
     Dosage: 2 MG, ONCE A DAY (2 1MG A DAY IS NOT EFFECTIVE)
  12. XANAX [Suspect]
     Active Substance: ALPRAZOLAM
     Indication: ANXIETY
     Dosage: 0.5 MG, 3X/DAY
  13. XANAX [Interacting]
     Active Substance: ALPRAZOLAM
     Dosage: 1 MG, 3X/DAY
     Dates: start: 20150715, end: 20160602
  14. ATARAX [Interacting]
     Active Substance: HYDROXYZINE HYDROCHLORIDE
     Dosage: UNK
     Dates: start: 20171108

REACTIONS (5)
  - Panic attack [Not Recovered/Not Resolved]
  - Drug interaction [Not Recovered/Not Resolved]
  - Dysgeusia [Not Recovered/Not Resolved]
  - Drug ineffective [Not Recovered/Not Resolved]
  - Dyspnoea [Not Recovered/Not Resolved]

NARRATIVE: CASE EVENT DATE: 20150725
